FAERS Safety Report 6541614-2 (Version None)
Quarter: 2010Q1

REPORT INFORMATION
  Report Type: 
  Country: None (occurrence: None)
  Receive Date: 20100119
  Receipt Date: 20100114
  Transmission Date: 20100710
  Serious: Yes (Other)
  Sender: FDA-Public Use
  Company Number: JP-BRISTOL-MYERS SQUIBB COMPANY-14934749

PATIENT
  Age: 77 Year
  Sex: Female

DRUGS (1)
  1. HYDREA [Suspect]
     Dosage: DOSE VALUES :500*2 MG/DAY,500*2 MG/DAY 5 DAYS A WEEK,500*2 MG/A DAY 4DAYS A WEEK.
     Route: 048
     Dates: start: 20071201

REACTIONS (1)
  - INTERSTITIAL LUNG DISEASE [None]
